FAERS Safety Report 22603352 (Version 1)
Quarter: 2023Q2

REPORT INFORMATION
  Report Type: Spontaneous
  Country: US (occurrence: US)
  Receive Date: 20230615
  Receipt Date: 20230615
  Transmission Date: 20230722
  Serious: No
  Sender: FDA-Public Use
  Company Number: US-JNJFOC-20230618898

PATIENT
  Sex: Male

DRUGS (1)
  1. TREMFYA [Suspect]
     Active Substance: GUSELKUMAB
     Indication: Product used for unknown indication
     Route: 058

REACTIONS (1)
  - Ingrown hair [Unknown]
